FAERS Safety Report 22625835 (Version 1)
Quarter: 2023Q2

REPORT INFORMATION
  Report Type: Report from Study
  Country: CA (occurrence: CA)
  Receive Date: 20230621
  Receipt Date: 20230621
  Transmission Date: 20230722
  Serious: Yes (Other)
  Sender: FDA-Public Use
  Company Number: CA-SAMSUNG BIOEPIS-SB-2023-05466

PATIENT
  Age: 60 Year
  Sex: Female

DRUGS (4)
  1. ETANERCEPT [Suspect]
     Active Substance: ETANERCEPT
     Indication: Ankylosing spondylitis
     Dosage: 50 MILLIGRAM/MILLILITER;
     Route: 065
     Dates: start: 20221201, end: 202302
  2. NAPROXEN [Concomitant]
     Active Substance: NAPROXEN
     Indication: Product used for unknown indication
     Dosage: UNKNOWN
     Route: 065
  3. PREDNISONE [Concomitant]
     Active Substance: PREDNISONE
     Indication: Product used for unknown indication
     Dosage: UNKNOWN
     Route: 065
  4. MORPHINE [Concomitant]
     Active Substance: MORPHINE
     Indication: Product used for unknown indication
     Dosage: UNKNOWN
     Route: 065

REACTIONS (11)
  - Rash pruritic [Recovering/Resolving]
  - Vitamin B complex deficiency [Not Recovered/Not Resolved]
  - Contusion [Unknown]
  - Frustration tolerance decreased [Unknown]
  - Hypertension [Not Recovered/Not Resolved]
  - Vitamin C decreased [Not Recovered/Not Resolved]
  - Ill-defined disorder [Not Recovered/Not Resolved]
  - Arterial disorder [Not Recovered/Not Resolved]
  - Scratch [Unknown]
  - Injection site rash [Unknown]
  - Feeling hot [Unknown]

NARRATIVE: CASE EVENT DATE: 20230101
